FAERS Safety Report 19487947 (Version 2)
Quarter: 2021Q3

REPORT INFORMATION
  Report Type: Spontaneous
  Country: US (occurrence: US)
  Receive Date: 20210702
  Receipt Date: 20210804
  Transmission Date: 20211014
  Serious: No
  Sender: FDA-Public Use
  Company Number: US-BEH-2021133568

PATIENT
  Age: 22 Year
  Sex: Male
  Weight: 84 kg

DRUGS (2)
  1. HIZENTRA [Suspect]
     Active Substance: HUMAN IMMUNOGLOBULIN G
     Dosage: 13 GRAM, QW
     Route: 058
  2. HIZENTRA [Suspect]
     Active Substance: HUMAN IMMUNOGLOBULIN G
     Indication: IMMUNODEFICIENCY COMMON VARIABLE
     Dosage: 12 GRAM, QW
     Route: 058
     Dates: start: 202011

REACTIONS (3)
  - Malabsorption from injection site [Not Recovered/Not Resolved]
  - Injection site mass [Not Recovered/Not Resolved]
  - Infusion site reaction [Not Recovered/Not Resolved]
